FAERS Safety Report 21968497 (Version 1)
Quarter: 2023Q1

REPORT INFORMATION
  Report Type: Report from Study
  Country: US (occurrence: US)
  Receive Date: 20230208
  Receipt Date: 20230208
  Transmission Date: 20230418
  Serious: Yes (Disabling, Other)
  Sender: FDA-Public Use
  Company Number: US-002147023-NVSC2023US023728

PATIENT
  Sex: Female
  Weight: 48.526 kg

DRUGS (1)
  1. ENTRESTO [Suspect]
     Active Substance: SACUBITRIL\VALSARTAN
     Indication: Stress cardiomyopathy
     Dosage: UNK UNK, BID
     Route: 048
     Dates: start: 202212, end: 20230122

REACTIONS (5)
  - Hypotension [Recovering/Resolving]
  - Dizziness postural [Unknown]
  - Wrong technique in product usage process [Recovered/Resolved]
  - Fall [Unknown]
  - Product use in unapproved indication [Unknown]

NARRATIVE: CASE EVENT DATE: 20220101
